FAERS Safety Report 9167663 (Version 1)
Quarter: 2013Q1

REPORT INFORMATION
  Report Type: Spontaneous
  Country: NO (occurrence: None)
  Receive Date: 20130314
  Receipt Date: 20130314
  Transmission Date: 20140127
  Serious: Yes (Death)
  Sender: FDA-Public Use
  Company Number: ABR_00863_2013

PATIENT
  Age: 86 Year
  Sex: Male

DRUGS (3)
  1. ERYTHROMYCIN (ERYTHROMYCIN) [Suspect]
     Indication: PRODUCT USED FOR UNKNOWN INDICATION
     Dosage: DF
  2. ZYPREXIA [Suspect]
     Indication: AGITATION
     Dates: start: 20120916, end: 20120916
  3. HALOPERIDOL (HALOPERIDOL) (HALOPERIDOL) [Suspect]
     Indication: AGITATION
     Dates: start: 20120915, end: 20120916

REACTIONS (5)
  - Neuroleptic malignant syndrome [None]
  - Renal failure [None]
  - Myocardial ischaemia [None]
  - Rhabdomyolysis [None]
  - Drug interaction [None]
